FAERS Safety Report 18013884 (Version 2)
Quarter: 2020Q3

REPORT INFORMATION
  Report Type: Spontaneous
  Country: JP (occurrence: JP)
  Receive Date: 20200713
  Receipt Date: 20200803
  Transmission Date: 20201103
  Serious: Yes (Hospitalization, Other)
  Sender: FDA-Public Use
  Company Number: JP-GLAXOSMITHKLINE-JP2020106422

PATIENT
  Age: 78 Year
  Sex: Male
  Weight: 64 kg

DRUGS (10)
  1. AVOLVE [Suspect]
     Active Substance: DUTASTERIDE
     Indication: BENIGN PROSTATIC HYPERPLASIA
     Dosage: 0.5 MG, 1D
     Route: 048
     Dates: start: 20141110
  2. FEBURIC [Concomitant]
     Active Substance: FEBUXOSTAT
     Dosage: UNK
     Dates: start: 20131101
  3. PALNAC [Concomitant]
     Active Substance: TAMSULOSIN
     Dosage: 0.2 MG, BID
     Dates: start: 20190318
  4. FEBURIC [Concomitant]
     Active Substance: FEBUXOSTAT
     Dosage: UNK
     Dates: start: 20170725
  5. TAMOXIFEN [Concomitant]
     Active Substance: TAMOXIFEN
     Dosage: 20 MG, QD
     Dates: start: 20200210, end: 20200510
  6. URSODEOXYCHOLIC ACID TABLETS [Concomitant]
     Dosage: 50 MG, TID
     Dates: start: 20200303
  7. LIXIANA OD TABLETS [Concomitant]
     Active Substance: EDOXABAN TOSYLATE
     Dosage: 30 MG, QD
     Dates: start: 20171220
  8. BISOPROLOL FUMARATE. [Concomitant]
     Active Substance: BISOPROLOL FUMARATE
     Dosage: 2.5 MG, BID
     Dates: start: 20160317
  9. BETANIS [Suspect]
     Active Substance: MIRABEGRON
     Dosage: UNK
     Dates: start: 20181219
  10. FARESTON [Concomitant]
     Active Substance: TOREMIFENE CITRATE
     Dosage: 40 MG, QD
     Dates: start: 20200623

REACTIONS (2)
  - Breast cancer male [Unknown]
  - Platelet count increased [Unknown]

NARRATIVE: CASE EVENT DATE: 20200210
